FAERS Safety Report 6193620-8 (Version None)
Quarter: 2009Q2

REPORT INFORMATION
  Report Type: 
  Country: None (occurrence: None)
  Receive Date: 20090518
  Receipt Date: 20090511
  Transmission Date: 20091009
  Serious: Yes (Hospitalization)
  Sender: FDA-Public Use
  Company Number: FR-ASTRAZENECA-2009CG00895

PATIENT
  Age: 1039 Month
  Sex: Male

DRUGS (4)
  1. CRESTOR [Suspect]
     Indication: MYOCARDIAL ISCHAEMIA
     Route: 048
     Dates: start: 20090101
  2. PLAVIX [Suspect]
     Indication: CORONARY ARTERIAL STENT INSERTION
     Route: 048
     Dates: start: 20090101, end: 20090324
  3. KREDEX [Suspect]
     Indication: MYOCARDIAL ISCHAEMIA
     Route: 048
     Dates: start: 20090101
  4. PREVISCAN [Suspect]
     Indication: ATRIAL FLUTTER
     Route: 048
     Dates: start: 20090101, end: 20090301

REACTIONS (3)
  - FACE OEDEMA [None]
  - PRURITUS [None]
  - RASH MACULO-PAPULAR [None]
